FAERS Safety Report 5311842-2 (Version None)
Quarter: 2007Q2

REPORT INFORMATION
  Report Type: 
  Country: None (occurrence: None)
  Receive Date: 20070430
  Receipt Date: 20060314
  Transmission Date: 20071010
  Serious: No
  Sender: FDA-Public Use
  Company Number: 2006UW04339

PATIENT
  Age: 79 Year
  Sex: Female
  Weight: 90.7 kg

DRUGS (8)
  1. NEXIUM [Suspect]
     Indication: GASTROOESOPHAGEAL REFLUX DISEASE
     Route: 048
  2. NEXIUM [Suspect]
     Route: 048
  3. AVANDIA [Concomitant]
  4. ACCOLATE [Concomitant]
  5. ADVAIR DISKUS 100/50 [Concomitant]
  6. HYZAAR [Concomitant]
  7. ACETYLSALICYLIC ACID SRT [Concomitant]
  8. NIACIN [Concomitant]

REACTIONS (1)
  - BLOOD GLUCOSE INCREASED [None]
